FAERS Safety Report 5774140-9 (Version None)
Quarter: 2008Q2

REPORT INFORMATION
  Report Type: 
  Country: None (occurrence: None)
  Receive Date: 20080616
  Receipt Date: 20080611
  Transmission Date: 20081010
  Serious: Yes (Life-Threatening)
  Sender: FDA-Public Use
  Company Number: JP-ASTRAZENECA-2008AP01695

PATIENT
  Age: 27250 Day
  Sex: Female
  Weight: 60 kg

DRUGS (6)
  1. OMEPRAL TABLETS [Suspect]
     Indication: GASTRIC ULCER
     Route: 048
  2. HOKUNALIN:TAPE [Concomitant]
     Dosage: 1 SHEET/DAY
     Route: 062
     Dates: start: 20080125
  3. SULFAMETHOXAZOLE AND TRIMETHOPRIM [Concomitant]
     Dosage: UNIT DOSE UNKNOWN
     Route: 048
     Dates: start: 20080125, end: 20080307
  4. ITRIZOLE [Concomitant]
     Route: 048
     Dates: start: 20080125, end: 20080307
  5. ALLOPURINOL [Concomitant]
     Route: 048
     Dates: start: 20080125, end: 20080307
  6. VESANOID [Concomitant]
     Route: 048
     Dates: start: 20080201

REACTIONS (1)
  - VENTRICULAR FIBRILLATION [None]
